FAERS Safety Report 9090178 (Version 1)
Quarter: 2013Q1

REPORT INFORMATION
  Report Type: Report from Study
  Country: US (occurrence: US)
  Receive Date: 20130218
  Receipt Date: 20130218
  Transmission Date: 20140127
  Serious: No
  Sender: FDA-Public Use
  Company Number: US-ABBOTT-12P-163-0909472-00

PATIENT
  Age: 56 Year
  Sex: Male

DRUGS (3)
  1. SIMCOR 500MG/40MG [Suspect]
     Indication: PRODUCT USED FOR UNKNOWN INDICATION
     Dosage: 500/40 MG
  2. NIASPAN (COATED) 500MG [Suspect]
     Indication: ILL-DEFINED DISORDER
     Dosage: IN THE MORNING ON AND OFF
  3. NIASPAN (COATED) 500MG [Suspect]
     Dosage: IN THE MORNING ON AND OFF

REACTIONS (4)
  - Flushing [Recovered/Resolved]
  - Erythema [Unknown]
  - Pruritus [Unknown]
  - Feeling hot [Unknown]
